FAERS Safety Report 4444341-0 (Version None)
Quarter: 2004Q3

REPORT INFORMATION
  Report Type: 
  Country: None (occurrence: None)
  Receive Date: 20040813
  Receipt Date: 20030408
  Transmission Date: 20050211
  Serious: Yes (Life-Threatening)
  Sender: FDA-Public Use
  Company Number: 20030018USST

PATIENT
  Sex: Male
  Weight: 13.6 kg

DRUGS (1)
  1. CARNITOR [Suspect]
     Indication: CONVULSION
     Dosage: 330MG, X1, ORAL
     Route: 048
     Dates: start: 20030407, end: 20030408

REACTIONS (1)
  - MYOCLONIC EPILEPSY [None]
